FAERS Safety Report 14848896 (Version 1)
Quarter: 2018Q2

REPORT INFORMATION
  Report Type: Spontaneous
  Country: US (occurrence: US)
  Receive Date: 20180504
  Receipt Date: 20180504
  Transmission Date: 20180711
  Serious: Yes (Hospitalization)
  Sender: FDA-Public Use
  Company Number: US-TEVA-559385USA

PATIENT
  Age: 60 Year
  Sex: Male

DRUGS (4)
  1. INSULIN [Concomitant]
     Active Substance: INSULIN NOS
     Route: 065
  2. METFORMIN [Suspect]
     Active Substance: METFORMIN HYDROCHLORIDE
     Indication: INTENTIONAL OVERDOSE
     Dosage: 10 TABLETS OF 500 MG
     Route: 048
  3. ISOPHANE INSULIN [Concomitant]
     Active Substance: INSULIN NOS
     Route: 065
  4. ALCOHOL. [Concomitant]
     Active Substance: ALCOHOL
     Route: 065

REACTIONS (2)
  - Lactic acidosis [Recovering/Resolving]
  - Intentional overdose [Recovering/Resolving]
